FAERS Safety Report 6436449-5 (Version None)
Quarter: 2009Q4

REPORT INFORMATION
  Report Type: 
  Country: None (occurrence: None)
  Receive Date: 20091111
  Receipt Date: 20091030
  Transmission Date: 20100525
  Serious: Yes (Hospitalization)
  Sender: FDA-Public Use
  Company Number: US-PFIZER INC-2006003623

PATIENT
  Sex: Male
  Weight: 105 kg

DRUGS (13)
  1. SUNITINIB MALATE [Suspect]
     Indication: RENAL CELL CARCINOMA
     Dosage: 50 MG, CYCLIC, QD X 28D WITH 14 DAY REST
     Route: 048
     Dates: start: 20051123, end: 20051214
  2. FIBERCON [Concomitant]
     Route: 048
     Dates: start: 20051221
  3. COUMADIN [Concomitant]
     Route: 048
     Dates: start: 20051123
  4. DEXAMETHASONE [Concomitant]
     Route: 048
     Dates: start: 20051123
  5. LIDOCAINE [Concomitant]
     Dosage: 5%
     Route: 061
     Dates: start: 20051123
  6. TOPROL-XL [Concomitant]
     Route: 048
     Dates: start: 20051123
  7. OXYCONTIN [Concomitant]
     Route: 048
     Dates: start: 20051123
  8. PANTOPRAZOLE [Concomitant]
     Route: 048
     Dates: start: 20051123
  9. SENNOSIDES [Concomitant]
     Route: 048
     Dates: start: 20051123
  10. PYRIDOXINE [Concomitant]
     Route: 048
  11. THIAMINE [Concomitant]
     Route: 048
  12. ARANESP [Concomitant]
     Route: 058
     Dates: start: 20051229
  13. PRILOSEC [Concomitant]
     Route: 048
     Dates: start: 20051123

REACTIONS (2)
  - HYPERGLYCAEMIA [None]
  - INFECTION [None]
